FAERS Safety Report 6911052-9 (Version None)
Quarter: 2010Q3

REPORT INFORMATION
  Report Type: 
  Country: None (occurrence: None)
  Receive Date: 20100806
  Receipt Date: 20100730
  Transmission Date: 20110219
  Serious: Yes (Hospitalization)
  Sender: FDA-Public Use
  Company Number: D0067785A

PATIENT
  Sex: Female

DRUGS (2)
  1. PRIORIX [Suspect]
     Indication: PROPHYLAXIS
     Route: 058
     Dates: start: 20100412, end: 20100412
  2. ALBUTEROL [Suspect]
     Route: 055
     Dates: start: 20100430, end: 20100501

REACTIONS (15)
  - BREATH SOUNDS ABNORMAL [None]
  - BRONCHOPNEUMONIA [None]
  - COUGH [None]
  - CYANOSIS [None]
  - DEHYDRATION [None]
  - DYSPNOEA [None]
  - GENERAL PHYSICAL HEALTH DETERIORATION [None]
  - LOBAR PNEUMONIA [None]
  - MUMPS [None]
  - PAROTID GLAND ENLARGEMENT [None]
  - PAROTITIS [None]
  - PHARYNGITIS [None]
  - PYREXIA [None]
  - RALES [None]
  - USE OF ACCESSORY RESPIRATORY MUSCLES [None]
